FAERS Safety Report 7641356-6 (Version None)
Quarter: 2011Q3

REPORT INFORMATION
  Report Type: 
  Country: None (occurrence: None)
  Receive Date: 20110728
  Receipt Date: 20110719
  Transmission Date: 20111222
  Serious: Yes (Death, Hospitalization)
  Sender: FDA-Public Use
  Company Number: JP-AMGEN-JPNCT2011014851

PATIENT
  Age: 84 Year
  Sex: Male
  Weight: 64 kg

DRUGS (24)
  1. GOSHAJINKIGAN [Concomitant]
     Dosage: 2.5 G, TID
     Route: 048
     Dates: start: 20100723, end: 20110404
  2. FLUOROURACIL [Suspect]
     Indication: COLORECTAL CANCER
     Route: 040
     Dates: start: 20100824, end: 20100824
  3. ISOVORIN [Suspect]
     Dosage: 500 MG, Q2WK
     Route: 041
     Dates: start: 20100921, end: 20110215
  4. AZUNOL [Concomitant]
     Route: 065
     Dates: start: 20101130, end: 20110404
  5. PANITUMUMAB [Suspect]
     Dosage: 5.63 MG/KG, Q2WK
     Route: 041
     Dates: start: 20101118, end: 20101118
  6. FLUOROURACIL [Suspect]
     Dosage: 500 MG, Q2WK
     Route: 040
     Dates: start: 20100921, end: 20110215
  7. PANITUMUMAB [Suspect]
     Dosage: 4.69 MG/KG, Q2WK
     Route: 041
     Dates: start: 20110111, end: 20110111
  8. OXALIPLATIN [Suspect]
     Dosage: 50 MG, Q2WK
     Route: 041
     Dates: start: 20100921, end: 20110215
  9. PANITUMUMAB [Suspect]
     Dosage: 5.94 MG/KG, Q2WK
     Route: 041
     Dates: start: 20100921, end: 20100921
  10. ISOVORIN [Suspect]
     Indication: COLORECTAL CANCER
     Route: 041
     Dates: start: 20100824, end: 20100824
  11. PANITUMUMAB [Suspect]
     Indication: COLORECTAL CANCER
     Dosage: 5.94 MG/KG, Q2WK
     Route: 041
     Dates: start: 20100824, end: 20100824
  12. PANITUMUMAB [Suspect]
     Dosage: 5.63 MG/KG, Q2WK
     Route: 041
     Dates: start: 20101019, end: 20101019
  13. PANITUMUMAB [Suspect]
     Dosage: 4.69 MG/KG, Q2WK
     Route: 041
     Dates: start: 20110215, end: 20110215
  14. CORTICOSTEROIDS [Concomitant]
     Indication: PROPHYLAXIS
     Dosage: UNK
     Route: 065
  15. PANITUMUMAB [Suspect]
     Dosage: 5.63 MG/KG, Q2WK
     Route: 041
     Dates: start: 20101214, end: 20101214
  16. OXALIPLATIN [Suspect]
     Indication: COLORECTAL CANCER
     Route: 041
     Dates: start: 20100824, end: 20100824
  17. FLUOROURACIL [Suspect]
     Route: 041
     Dates: start: 20100824, end: 20100824
  18. FLUOROURACIL [Suspect]
     Dosage: 2500 MG, Q2WK
     Route: 041
     Dates: start: 20100921, end: 20110215
  19. KENALOG [Concomitant]
     Route: 049
     Dates: start: 20101130, end: 20110404
  20. CELECOXIB [Concomitant]
     Route: 048
     Dates: start: 20101216, end: 20110404
  21. DECADRON [Concomitant]
     Dosage: 6.6 MG, QD
     Route: 042
     Dates: start: 20100824, end: 20110404
  22. METHYCOBAL [Concomitant]
     Dosage: 500 A?G, TID
     Route: 048
     Dates: start: 20090606, end: 20110404
  23. RINDERON-VG [Concomitant]
     Dosage: UNK
     Route: 062
     Dates: start: 20100924, end: 20110404
  24. URSO 250 [Concomitant]
     Dosage: 200 MG, TID
     Route: 048
     Dates: start: 20101216, end: 20110404

REACTIONS (5)
  - PARONYCHIA [None]
  - DERMATITIS ACNEIFORM [None]
  - THROMBOCYTOPENIA [None]
  - STOMATITIS [None]
  - COLORECTAL CANCER [None]
